FAERS Safety Report 9554248 (Version 1)
Quarter: 2013Q3

REPORT INFORMATION
  Report Type: Spontaneous
  Country: US (occurrence: US)
  Receive Date: 20130925
  Receipt Date: 20130925
  Transmission Date: 20140515
  Serious: No
  Sender: FDA-Public Use
  Company Number: US-MYLANLABS-2012S1018361

PATIENT
  Age: 14 Year
  Sex: Male
  Weight: 72.58 kg

DRUGS (2)
  1. ALENDRONATE SODIUM TABLETS USP [Suspect]
     Route: 048
  2. ESCITALOPRAM [Concomitant]
     Indication: DEPRESSION
     Route: 048
     Dates: start: 201205

REACTIONS (3)
  - Headache [Recovered/Resolved]
  - Heart rate increased [Recovered/Resolved]
  - Accidental exposure to product [Recovered/Resolved]
